FAERS Safety Report 6400266-2 (Version None)
Quarter: 2009Q4

REPORT INFORMATION
  Report Type: 
  Country: None (occurrence: None)
  Receive Date: 20091014
  Receipt Date: 20091007
  Transmission Date: 20100525
  Serious: Yes (Hospitalization)
  Sender: FDA-Public Use
  Company Number: US-MERCK-0910USA00920

PATIENT
  Age: 84 Year
  Sex: Female

DRUGS (2)
  1. FOSAMAX [Suspect]
     Indication: OSTEOPOROSIS
     Route: 048
     Dates: start: 20090929
  2. BONALON [Suspect]
     Indication: OSTEOPOROSIS
     Route: 048
     Dates: start: 20070927, end: 20090915

REACTIONS (2)
  - OSTEOMYELITIS [None]
  - OSTEONECROSIS [None]
